FAERS Safety Report 6218117-8 (Version None)
Quarter: 2009Q2

REPORT INFORMATION
  Report Type: 
  Country: None (occurrence: None)
  Receive Date: 20090608
  Receipt Date: 20090529
  Transmission Date: 20091009
  Serious: Yes (Disabling)
  Sender: FDA-Public Use
  Company Number: PHHY2009IT20770

PATIENT
  Sex: Male

DRUGS (4)
  1. ZOMETA [Suspect]
     Indication: LUNG ADENOCARCINOMA
     Dosage: 8 MG, CYCLIC
     Route: 042
     Dates: start: 20080810, end: 20090227
  2. BEVACIZUMAB [Concomitant]
     Indication: LUNG ADENOCARCINOMA
     Dosage: 675 MG, UNK
     Route: 042
  3. GEMCITABINE [Concomitant]
     Indication: LUNG ADENOCARCINOMA
     Dosage: 1900 MG, UNK
     Route: 042
  4. CISPLATIN [Concomitant]
     Indication: LUNG ADENOCARCINOMA
     Dosage: 140 MG, UNK

REACTIONS (2)
  - OSTEONECROSIS [None]
  - SINUS DISORDER [None]
